FAERS Safety Report 8177214-0 (Version None)
Quarter: 2012Q1

REPORT INFORMATION
  Report Type: 
  Country: None (occurrence: None)
  Receive Date: 20120301
  Receipt Date: 20120223
  Transmission Date: 20120608
  Serious: Yes (Hospitalization)
  Sender: FDA-Public Use
  Company Number: US-JNJFOC-20120213032

PATIENT
  Sex: Female
  Weight: 48.6 kg

DRUGS (4)
  1. INFLIXIMAB, RECOMBINANT [Suspect]
     Indication: CROHN'S DISEASE
     Route: 042
     Dates: start: 20040310, end: 20091009
  2. IRON SUCROSE [Suspect]
     Indication: PRODUCT USED FOR UNKNOWN INDICATION
     Route: 042
     Dates: start: 20120220
  3. IRON SUCROSE [Suspect]
     Route: 042
  4. TACROLIMUS [Concomitant]

REACTIONS (1)
  - INFUSION RELATED REACTION [None]
